FAERS Safety Report 25224482 (Version 1)
Quarter: 2025Q2

REPORT INFORMATION
  Report Type: Spontaneous
  Country: US (occurrence: US)
  Receive Date: 20250422
  Receipt Date: 20250422
  Transmission Date: 20250716
  Serious: Yes (Life-Threatening, Hospitalization, Other)
  Sender: AUROBINDO
  Company Number: US-MLMSERVICE-20250331-PI462706-00029-1

PATIENT
  Age: 14 Year
  Sex: Female

DRUGS (5)
  1. ACETAMINOPHEN [Suspect]
     Active Substance: ACETAMINOPHEN
     Indication: Product used for unknown indication
     Route: 048
  2. ACETYLCYSTEINE [Suspect]
     Active Substance: ACETYLCYSTEINE
     Indication: Acute hepatic failure
     Route: 065
  3. IRON [Suspect]
     Active Substance: IRON
     Indication: Product used for unknown indication
     Route: 048
  4. DEFEROXAMINE [Suspect]
     Active Substance: DEFEROXAMINE MESYLATE
     Indication: Acute hepatic failure
     Route: 065
  5. FOMEPIZOLE [Suspect]
     Active Substance: FOMEPIZOLE
     Indication: Acute hepatic failure
     Route: 065

REACTIONS (7)
  - Acute hepatic failure [Unknown]
  - Hyperammonaemic encephalopathy [Unknown]
  - Vasoplegia syndrome [Unknown]
  - Analgesic drug level increased [Unknown]
  - Coagulopathy [Unknown]
  - Intentional overdose [Unknown]
  - Drug ineffective [Unknown]
